FAERS Safety Report 14340258 (Version 1)
Quarter: 2018Q1

REPORT INFORMATION
  Report Type: Report from Study
  Country: HU (occurrence: HU)
  Receive Date: 20180101
  Receipt Date: 20180101
  Transmission Date: 20180509
  Serious: Yes (Other)
  Sender: FDA-Public Use
  Company Number: HU-TEVA-2017-HU-836750

PATIENT
  Sex: Female

DRUGS (10)
  1. EVEROLIMUS. [Suspect]
     Active Substance: EVEROLIMUS
     Indication: BREAST CANCER
     Dosage: UNK
     Route: 065
     Dates: start: 20160602
  2. EPIRUBICIN [Suspect]
     Active Substance: EPIRUBICIN
     Indication: BREAST CANCER
     Dosage: UNK
     Route: 065
     Dates: start: 20141112, end: 20150407
  3. PACLITAXEL. [Suspect]
     Active Substance: PACLITAXEL
     Indication: BREAST CANCER
     Dosage: UNK
     Route: 065
     Dates: start: 20141112, end: 20150407
  4. TORVATEC [Concomitant]
     Indication: PRODUCT USED FOR UNKNOWN INDICATION
     Route: 065
  5. IRINOTECAN [Suspect]
     Active Substance: IRINOTECAN
     Indication: BREAST CANCER
     Dosage: UNK
     Route: 065
     Dates: start: 20141112, end: 20150407
  6. OXYGEN. [Concomitant]
     Active Substance: OXYGEN
     Indication: PRODUCT USED FOR UNKNOWN INDICATION
     Route: 065
  7. VALSOCARD [Concomitant]
     Indication: PRODUCT USED FOR UNKNOWN INDICATION
     Dosage: UNK
     Route: 065
  8. LETROZOLE. [Suspect]
     Active Substance: LETROZOLE
     Indication: BREAST CANCER
     Dosage: UNK
     Route: 065
     Dates: start: 201504, end: 201604
  9. DOCETAXEL. [Suspect]
     Active Substance: DOCETAXEL
     Indication: BREAST CANCER
     Dosage: UNK
     Route: 065
     Dates: start: 20141112, end: 20150407
  10. EXEMESTANE. [Concomitant]
     Active Substance: EXEMESTANE
     Indication: BREAST CANCER
     Dosage: UNK
     Route: 065
     Dates: start: 20160602

REACTIONS (6)
  - Malignant neoplasm progression [Recovering/Resolving]
  - Hyperglycaemia [Unknown]
  - Mucosal inflammation [Unknown]
  - Malignant pleural effusion [Recovering/Resolving]
  - Lymphadenopathy mediastinal [Recovering/Resolving]
  - Breast cancer [Recovering/Resolving]

NARRATIVE: CASE EVENT DATE: 20160419
